FAERS Safety Report 24219855 (Version 3)
Quarter: 2024Q4

REPORT INFORMATION
  Report Type: Report from Study
  Country: US (occurrence: US)
  Receive Date: 20240817
  Receipt Date: 20241129
  Transmission Date: 20250114
  Serious: Yes (Hospitalization)
  Sender: UCB
  Company Number: US-UCBSA-2024028450

PATIENT
  Age: 7 Year
  Sex: Female
  Weight: 24.49 kg

DRUGS (6)
  1. FINTEPLA [Suspect]
     Active Substance: FENFLURAMINE
     Indication: Lennox-Gastaut syndrome
     Dosage: 2.2 MILLILITER, 2X/DAY (BID)
     Dates: start: 20231201
  2. FINTEPLA [Suspect]
     Active Substance: FENFLURAMINE
     Dosage: 3 MILLILITER, 2X/DAY (BID)
     Dates: start: 20240209, end: 2024
  3. FINTEPLA [Suspect]
     Active Substance: FENFLURAMINE
     Dosage: 3.2 MILLILITER, 2X/DAY (BID)
     Route: 048
     Dates: start: 2024
  4. FINTEPLA [Suspect]
     Active Substance: FENFLURAMINE
     Dosage: 2.2 MG/KG/DAY (6.4 MILLIGRAM/DAY)
     Dates: start: 2024
  5. EPIDIOLEX [Concomitant]
     Active Substance: CANNABIDIOL
     Indication: Product used for unknown indication
     Dosage: UNK
  6. CLONAZEPAM [Concomitant]
     Active Substance: CLONAZEPAM
     Indication: Product used for unknown indication
     Dosage: UNK

REACTIONS (6)
  - Seizure [Not Recovered/Not Resolved]
  - Affective disorder [Not Recovered/Not Resolved]
  - Anger [Not Recovered/Not Resolved]
  - Crying [Not Recovered/Not Resolved]
  - Irritability [Not Recovered/Not Resolved]
  - Affect lability [Unknown]

NARRATIVE: CASE EVENT DATE: 20240530
